FAERS Safety Report 21622129 (Version 3)
Quarter: 2023Q1

REPORT INFORMATION
  Report Type: Spontaneous
  Country: US (occurrence: US)
  Receive Date: 20221121
  Receipt Date: 20230105
  Transmission Date: 20230417
  Serious: No
  Sender: FDA-Public Use
  Company Number: US-PFIZER INC-2017070721

PATIENT
  Age: 24 Day
  Sex: Male

DRUGS (3)
  1. GENOTROPIN [Suspect]
     Active Substance: SOMATROPIN
     Indication: Hypothyroidism
     Dosage: 0.8 MG, DAILY
     Dates: start: 20160121
  2. GENOTROPIN [Suspect]
     Active Substance: SOMATROPIN
     Indication: Adrenocorticotropic hormone deficiency
  3. GENOTROPIN [Suspect]
     Active Substance: SOMATROPIN
     Indication: Micropenis

REACTIONS (3)
  - Wrong technique in device usage process [Unknown]
  - Device use issue [Unknown]
  - Device issue [Unknown]
